FAERS Safety Report 12217053 (Version 1)
Quarter: 2016Q1

REPORT INFORMATION
  Report Type: Spontaneous
  Country: US (occurrence: None)
  Receive Date: 20160328
  Receipt Date: 20160328
  Transmission Date: 20160526
  Serious: Yes (Life-Threatening, Disabling)
  Sender: FDA-Public Use
  Company Number: None

PATIENT
  Age: 53 Year
  Sex: Female
  Weight: 74.84 kg

DRUGS (1)
  1. LEVOFLOXACIN. [Suspect]
     Active Substance: LEVOFLOXACIN
     Indication: BRONCHITIS
     Route: 048
     Dates: start: 20160104, end: 20160111

REACTIONS (28)
  - Hypoacusis [None]
  - Visual impairment [None]
  - Balance disorder [None]
  - Skin disorder [None]
  - Petechiae [None]
  - Dyspepsia [None]
  - Pyrexia [None]
  - Crying [None]
  - Electrocardiogram abnormal [None]
  - Insomnia [None]
  - Amnesia [None]
  - Decreased appetite [None]
  - Thirst [None]
  - Nightmare [None]
  - Mood altered [None]
  - Skin exfoliation [None]
  - Tendonitis [None]
  - Product substitution issue [None]
  - Nervous system disorder [None]
  - Mobility decreased [None]
  - Tremor [None]
  - Feeling abnormal [None]
  - Neuropathy peripheral [None]
  - Pain [None]
  - Gastrointestinal disorder [None]
  - Migraine [None]
  - Hyperacusis [None]
  - Dry skin [None]

NARRATIVE: CASE EVENT DATE: 20160111
